FAERS Safety Report 9219265 (Version 1)
Quarter: 2013Q1

REPORT INFORMATION
  Report Type: Spontaneous
  Country: US (occurrence: None)
  Receive Date: 20120827
  Receipt Date: 20120827
  Transmission Date: 20140127
  Serious: No
  Sender: FDA-Public Use
  Company Number: 349163

PATIENT
  Age: 71 Year
  Sex: Female

DRUGS (2)
  1. NOVOLOG FLEXPEN [Suspect]
     Indication: TYPE 2 DIABETES MELLITUS
     Route: 058
     Dates: start: 2010
  2. VICTOZA [Suspect]
     Indication: TYPE 2 DIABETES MELLITUS
     Route: 058
     Dates: start: 2010

REACTIONS (1)
  - Urinary tract infection [None]
